FAERS Safety Report 8879620 (Version 1)
Quarter: 2012Q4

REPORT INFORMATION
  Report Type: 
  Country: ZA (occurrence: ZA)
  Receive Date: 20121101
  Receipt Date: 20121101
  Transmission Date: 20130627
  Serious: Yes (Hospitalization)
  Sender: FDA-Public Use
  Company Number: ZA-SANOFI-AVENTIS-2012SA077993

PATIENT
  Sex: Female

DRUGS (2)
  1. LANTUS SOLOSTAR [Suspect]
     Indication: TYPE 2 DIABETES MELLITUS
     Route: 064
     Dates: start: 201203
  2. SOLOSTAR [Suspect]
     Indication: DEVICE THERAPY
     Dates: start: 201203

REACTIONS (4)
  - Foetal distress syndrome [Recovered/Resolved]
  - Lung disorder [Recovered/Resolved]
  - Jaundice neonatal [Recovered/Resolved]
  - Exposure during breast feeding [Unknown]
